FAERS Safety Report 11466235 (Version 2)
Quarter: 2016Q2

REPORT INFORMATION
  Report Type: Spontaneous
  Country: US (occurrence: US)
  Receive Date: 20150907
  Receipt Date: 20160401
  Transmission Date: 20160815
  Serious: No
  Sender: FDA-Public Use
  Company Number: US-009507513-1509USA003596

PATIENT
  Age: 20 Year
  Sex: Female
  Weight: 73.92 kg

DRUGS (1)
  1. NEXPLANON [Suspect]
     Active Substance: ETONOGESTREL
     Indication: CONTRACEPTION
     Dosage: 1 ROD 3 YEARS, IN HER LEFT ARM
     Route: 059
     Dates: start: 20140826

REACTIONS (5)
  - Amenorrhoea [Recovered/Resolved]
  - Urinary tract infection [Unknown]
  - Metrorrhagia [Unknown]
  - Menstruation irregular [Unknown]
  - Weight increased [Unknown]

NARRATIVE: CASE EVENT DATE: 20140826
